FAERS Safety Report 5382571-4 (Version None)
Quarter: 2007Q3

REPORT INFORMATION
  Report Type: 
  Country: None (occurrence: None)
  Receive Date: 20070702
  Receipt Date: 20070611
  Transmission Date: 20080115
  Serious: No
  Sender: FDA-Public Use
  Company Number: 2007PV031130

PATIENT
  Age: 59 Year
  Sex: Male
  Weight: 109.7705 kg

DRUGS (10)
  1. SYMLIN [Suspect]
     Indication: TYPE 1 DIABETES MELLITUS
     Dosage: SEE IMAGE
     Route: 058
     Dates: start: 20070201, end: 20070201
  2. SYMLIN [Suspect]
     Indication: TYPE 1 DIABETES MELLITUS
     Dosage: SEE IMAGE
     Route: 058
     Dates: start: 20070201, end: 20070201
  3. SYMLIN [Suspect]
     Indication: TYPE 1 DIABETES MELLITUS
     Dosage: SEE IMAGE
     Route: 058
     Dates: start: 20070201
  4. SYMLIN [Suspect]
     Indication: TYPE 1 DIABETES MELLITUS
     Dosage: SEE IMAGE
     Route: 058
     Dates: start: 20070308
  5. PREDNISONE TAB [Suspect]
     Indication: CATHETERISATION CARDIAC
     Dosage: 40 MG;BID;PO
     Route: 048
     Dates: start: 20070307
  6. NOVOLOG [Concomitant]
  7. GLUCOPHAGE [Concomitant]
  8. INSULIN [Concomitant]
  9. PLAVIX [Concomitant]
  10. BENICAR [Concomitant]

REACTIONS (3)
  - BLOOD GLUCOSE INCREASED [None]
  - DRUG INEFFECTIVE [None]
  - NAUSEA [None]
